FAERS Safety Report 9596385 (Version 2)
Quarter: 2013Q4

REPORT INFORMATION
  Report Type: Spontaneous
  Country: US (occurrence: US)
  Receive Date: 20131004
  Receipt Date: 20131004
  Transmission Date: 20140711
  Serious: Yes (Hospitalization)
  Sender: FDA-Public Use
  Company Number: US-B.I. PHARMACEUTICALS,INC./RIDGEFIELD-2013-BI-21837BP

PATIENT
  Age: 86 Year
  Sex: Female
  Weight: 67.13 kg

DRUGS (12)
  1. PRADAXA [Suspect]
     Indication: ATRIAL FIBRILLATION
     Dosage: 300 MG
     Dates: start: 20110901, end: 20120116
  2. DILTIAZEM [Concomitant]
     Dosage: 360 MG
  3. FUROSEMIDE [Concomitant]
     Dosage: 20 MG
  4. LISINOPRIL [Concomitant]
     Dosage: 10 MG
  5. POTASSIUM [Concomitant]
     Dosage: 40 MEQ
  6. SYMBICORT [Concomitant]
  7. TOPROL XL [Concomitant]
     Dosage: 100 MG
  8. TRIAMTERENE/HYDROCHLOROTHIAZIDE [Concomitant]
  9. VICODIN [Concomitant]
  10. XOPENEX [Concomitant]
  11. FOLIC ACID [Concomitant]
  12. LEVOTHYROXINE [Concomitant]
     Dosage: 50 MCG

REACTIONS (2)
  - Gastrointestinal haemorrhage [Unknown]
  - Anaemia [Unknown]
